FAERS Safety Report 6383648-7 (Version None)
Quarter: 2009Q3

REPORT INFORMATION
  Report Type: 
  Country: None (occurrence: None)
  Receive Date: 20090929
  Receipt Date: 20090929
  Transmission Date: 20100115
  Serious: Yes (Life-Threatening)
  Sender: FDA-Public Use
  Company Number: None

PATIENT
  Age: 56 Year
  Sex: Female
  Weight: 90.7194 kg

DRUGS (1)
  1. GABAPENTIN [Suspect]
     Indication: PAIN IN EXTREMITY
     Dosage: ONE THREE TIMES A DAY (1 TO 2 YEARS)
     Dates: start: 20080102, end: 20090605

REACTIONS (1)
  - SUICIDAL IDEATION [None]
